FAERS Safety Report 6857328-5 (Version None)
Quarter: 2010Q3

REPORT INFORMATION
  Report Type: 
  Country: None (occurrence: None)
  Receive Date: 20100719
  Receipt Date: 20100707
  Transmission Date: 20110219
  Serious: Yes (Other)
  Sender: FDA-Public Use
  Company Number: US-PFIZER INC-2010085502

PATIENT
  Sex: Female
  Weight: 57.143 kg

DRUGS (5)
  1. CHANTIX [Suspect]
     Indication: SMOKING CESSATION THERAPY
     Dosage: 0.5 MG, 1X/DAY
     Route: 048
     Dates: start: 20100401, end: 20100401
  2. CHANTIX [Suspect]
     Dosage: 1 MG, 1X/DAY
     Route: 048
     Dates: start: 20100401
  3. CHANTIX [Suspect]
     Dosage: 1 MG, 2X/DAY
     Route: 048
     Dates: end: 20100601
  4. PHENTERMINE [Suspect]
     Indication: WEIGHT DECREASED
     Dosage: 37.5 MG, UNK
     Dates: start: 20100507, end: 20100601
  5. VITAMIN C [Concomitant]
     Dosage: UNK

REACTIONS (5)
  - DIZZINESS [None]
  - FEELING ABNORMAL [None]
  - FLUID RETENTION [None]
  - SWELLING FACE [None]
  - WEIGHT INCREASED [None]
